FAERS Safety Report 5501349-1 (Version None)
Quarter: 2007Q4

REPORT INFORMATION
  Report Type: 
  Country: None (occurrence: None)
  Receive Date: 20071026
  Receipt Date: 20071016
  Transmission Date: 20080405
  Serious: Yes (Other)
  Sender: FDA-Public Use
  Company Number: 07H-163-0312665-00

PATIENT
  Sex: Female
  Weight: 4.013 kg

DRUGS (5)
  1. LIPOSYN III 20% [Suspect]
     Indication: PARENTERAL NUTRITION
     Dosage: INTRAVENOUS
     Route: 042
  2. GENTAMICIN [Concomitant]
  3. METRONIDAZOLE [Concomitant]
  4. OXACILLIN [Concomitant]
  5. VANCOMYCIN [Concomitant]

REACTIONS (3)
  - ANAPHYLACTIC REACTION [None]
  - LATEX ALLERGY [None]
  - RASH ERYTHEMATOUS [None]
